FAERS Safety Report 16826018 (Version 2)
Quarter: 2019Q3

REPORT INFORMATION
  Report Type: Spontaneous
  Country: GB (occurrence: GB)
  Receive Date: 20190919
  Receipt Date: 20190928
  Transmission Date: 20191005
  Serious: Yes (Hospitalization, Other)
  Sender: FDA-Public Use
  Company Number: GB-ACCORD-154995

PATIENT
  Age: 55 Year
  Sex: Male
  Weight: 70 kg

DRUGS (18)
  1. FYBOGEL [Concomitant]
     Active Substance: PLANTAGO OVATA SEED
  2. ATROPINE. [Concomitant]
     Active Substance: ATROPINE
     Dosage: NIGHT
  3. OMEPRAZOLE. [Interacting]
     Active Substance: OMEPRAZOLE
     Indication: GASTROOESOPHAGEAL REFLUX DISEASE
     Route: 048
     Dates: start: 201812, end: 201908
  4. IRON [Concomitant]
     Active Substance: IRON
  5. FINASTERIDE. [Concomitant]
     Active Substance: FINASTERIDE
  6. METFORMIN [Concomitant]
     Active Substance: METFORMIN HYDROCHLORIDE
  7. QVAR [Concomitant]
     Active Substance: BECLOMETHASONE DIPROPIONATE
  8. PARACETAMOL [Concomitant]
     Active Substance: ACETAMINOPHEN
     Dosage: 1 G, QID
     Route: 048
     Dates: start: 201705
  9. APIXABAN [Concomitant]
     Active Substance: APIXABAN
  10. CLOZARIL [Interacting]
     Active Substance: CLOZAPINE
     Indication: SCHIZOPHRENIA
     Dosage: 75 MG, AM
     Route: 048
     Dates: start: 19960410
  11. BECLOMETASONE [Concomitant]
     Active Substance: BECLOMETHASONE DIPROPIONATE
     Indication: CHRONIC OBSTRUCTIVE PULMONARY DISEASE
     Dosage: 50 MICROG, BID
  12. PIOGLITAZONE/PIOGLITAZONE HYDROCHLORIDE [Concomitant]
  13. CLOZAPINE. [Suspect]
     Active Substance: CLOZAPINE
     Indication: SCHIZOPHRENIA
     Dosage: 75MG MORNING + 125MG NIGHT
     Route: 048
  14. OMEPRAZOLE. [Interacting]
     Active Substance: OMEPRAZOLE
     Indication: GASTROOESOPHAGEAL REFLUX DISEASE
     Dosage: 20 MG, BID
     Route: 048
     Dates: end: 201812
  15. BISOPROLOL [Concomitant]
     Active Substance: BISOPROLOL
  16. CLOZARIL [Interacting]
     Active Substance: CLOZAPINE
     Indication: SCHIZOPHRENIA
     Dosage: 125 MG, PM
     Route: 048
     Dates: start: 19960410
  17. ALGINIC ACID/MAGNESIUM ALGINATE [Concomitant]
  18. EXENATIDE. [Concomitant]
     Active Substance: EXENATIDE

REACTIONS (12)
  - Drug interaction [Unknown]
  - Blood triglycerides increased [Unknown]
  - Salivary hypersecretion [Unknown]
  - Type 2 diabetes mellitus [Unknown]
  - Anaemia [Unknown]
  - Pancreatitis [Unknown]
  - Antipsychotic drug level decreased [Unknown]
  - Benign prostatic hyperplasia [Unknown]
  - Blood cholesterol abnormal [Unknown]
  - Cerebrovascular accident [Unknown]
  - Tachycardia [Unknown]
  - Pulmonary embolism [Recovered/Resolved]

NARRATIVE: CASE EVENT DATE: 1999
